FAERS Safety Report 22016547 (Version 1)
Quarter: 2023Q1

REPORT INFORMATION
  Report Type: Spontaneous
  Country: US (occurrence: US)
  Receive Date: 20230221
  Receipt Date: 20230221
  Transmission Date: 20230418
  Serious: Yes (Other)
  Sender: FDA-Public Use
  Company Number: US-SA-SAC20230220001390

PATIENT
  Age: 25 Year
  Sex: Male

DRUGS (4)
  1. ELOCTATE [Suspect]
     Active Substance: EFMOROCTOCOG ALFA
     Indication: Factor VIII deficiency
     Dosage: 4000 U, Q5D
     Route: 042
     Dates: start: 202301
  2. ELOCTATE [Suspect]
     Active Substance: EFMOROCTOCOG ALFA
     Indication: Factor VIII deficiency
     Dosage: 4000 U, Q5D
     Route: 042
     Dates: start: 202301
  3. ELOCTATE [Suspect]
     Active Substance: EFMOROCTOCOG ALFA
     Indication: Haemorrhage
     Dosage: 4000 U, QD (4000 UNITS (3600-4400) (EVERY 24 HOURS AS NEEDED FOR ACUTE BLEEDS)
     Route: 042
     Dates: start: 202301
  4. ELOCTATE [Suspect]
     Active Substance: EFMOROCTOCOG ALFA
     Indication: Haemorrhage
     Dosage: 4000 U, QD (4000 UNITS (3600-4400) (EVERY 24 HOURS AS NEEDED FOR ACUTE BLEEDS)
     Route: 042
     Dates: start: 202301

REACTIONS (2)
  - Syncope [Unknown]
  - Blood pressure abnormal [Unknown]

NARRATIVE: CASE EVENT DATE: 20230101
